FAERS Safety Report 6863255-X (Version None)
Quarter: 2010Q3

REPORT INFORMATION
  Report Type: 
  Country: None (occurrence: None)
  Receive Date: 20100721
  Receipt Date: 20100714
  Transmission Date: 20110219
  Serious: Yes (Other)
  Sender: FDA-Public Use
  Company Number: US-JNJFOC-20100705181

PATIENT
  Sex: Female
  Weight: 68.04 kg

DRUGS (3)
  1. DURAGESIC-100 [Suspect]
     Indication: PRODUCT USED FOR UNKNOWN INDICATION
     Route: 062
  2. DURAGESIC-100 [Suspect]
     Route: 062
  3. UNKNOWN MEDICATION [Concomitant]
     Route: 065

REACTIONS (3)
  - PRODUCT ADHESION ISSUE [None]
  - WEIGHT INCREASED [None]
  - WRONG TECHNIQUE IN DRUG USAGE PROCESS [None]
